FAERS Safety Report 7530173-3 (Version None)
Quarter: 2011Q2

REPORT INFORMATION
  Report Type: 
  Country: None (occurrence: None)
  Receive Date: 20110607
  Receipt Date: 20110411
  Transmission Date: 20111010
  Serious: No
  Sender: FDA-Public Use
  Company Number: US-BAYER-2011-032460

PATIENT
  Age: 18 Year
  Sex: Female

DRUGS (2)
  1. BEYAZ [Suspect]
     Indication: ACNE
  2. BEYAZ [Suspect]
     Indication: CONTRACEPTION
     Dosage: UNK
     Route: 048
     Dates: start: 20110201

REACTIONS (1)
  - VAGINAL HAEMORRHAGE [None]
